FAERS Safety Report 6085883-4 (Version None)
Quarter: 2009Q1

REPORT INFORMATION
  Report Type: 
  Country: None (occurrence: None)
  Receive Date: 20090220
  Receipt Date: 20090218
  Transmission Date: 20090719
  Serious: Yes (Other)
  Sender: FDA-Public Use
  Company Number: D0060590A

PATIENT
  Sex: Female

DRUGS (1)
  1. CEFUHEXAL [Suspect]
     Dosage: 500MG TWICE PER DAY
     Route: 048
     Dates: start: 20090126, end: 20090127

REACTIONS (4)
  - DYSPNOEA [None]
  - HYPERSENSITIVITY [None]
  - LIP SWELLING [None]
  - SWOLLEN TONGUE [None]
